FAERS Safety Report 4788813-8 (Version None)
Quarter: 2005Q4

REPORT INFORMATION
  Report Type: 
  Country: None (occurrence: None)
  Receive Date: 20051004
  Receipt Date: 20050921
  Transmission Date: 20060501
  Serious: Yes (Death, Other)
  Sender: FDA-Public Use
  Company Number: 2005129941

PATIENT
  Age: 49 Year
  Sex: Female

DRUGS (7)
  1. IDAMYCIN [Suspect]
     Indication: ACUTE MYELOID LEUKAEMIA
     Dosage: INTRAVENOUS
     Route: 042
  2. CYTARABINE [Suspect]
     Indication: ACUTE MYELOID LEUKAEMIA
     Dosage: INTRAVENOUS
     Route: 042
     Dates: start: 20040101
  3. DAUNORUBICIN              (DAUNORUBICIN) [Concomitant]
  4. MERCAPTOPURINE [Concomitant]
  5. PREDNISOLONE [Concomitant]
  6. MICAFUNGIN               (MICAFUNGIN) [Concomitant]
  7. AMPHOTERICIN B [Concomitant]

REACTIONS (8)
  - ASPERGILLOMA [None]
  - DYSPNOEA [None]
  - HAEMORRHAGE [None]
  - HYPOXIA [None]
  - INFECTION [None]
  - LEUKOPENIA [None]
  - OBSTRUCTIVE AIRWAYS DISORDER [None]
  - RESPIRATORY ARREST [None]
